FAERS Safety Report 24962544 (Version 2)
Quarter: 2025Q1

REPORT INFORMATION
  Report Type: Report from Study
  Country: US (occurrence: US)
  Receive Date: 20250212
  Receipt Date: 20250321
  Transmission Date: 20250409
  Serious: No
  Sender: ABBVIE
  Company Number: US-ABBVIE-6124791

PATIENT
  Age: 78 Year
  Sex: Female
  Weight: 97 kg

DRUGS (1)
  1. SKYRIZI [Suspect]
     Active Substance: RISANKIZUMAB-RZAA
     Indication: Psoriasis
     Route: 058
     Dates: start: 20250124

REACTIONS (4)
  - Periorbital swelling [Recovered/Resolved]
  - Post procedural swelling [Recovered/Resolved]
  - Post procedural erythema [Recovered/Resolved]
  - Post procedural pruritus [Recovered/Resolved]

NARRATIVE: CASE EVENT DATE: 20250125
